FAERS Safety Report 9651066 (Version 3)
Quarter: 2013Q4

REPORT INFORMATION
  Report Type: Report from Study
  Country: US (occurrence: US)
  Receive Date: 20131029
  Receipt Date: 20131031
  Transmission Date: 20140711
  Serious: Yes (Hospitalization)
  Sender: FDA-Public Use
  Company Number: PHEH2013US020302

PATIENT
  Sex: Female
  Weight: 58 kg

DRUGS (8)
  1. AFINITOR [Suspect]
     Indication: UTERINE LEIOMYOSARCOMA
     Dosage: 5 MG DAILY (2 TABLETS DAILY)
     Route: 048
     Dates: start: 201212, end: 201309
  2. AFINITOR [Suspect]
     Indication: OFF LABEL USE
  3. EXEMESTANE [Suspect]
     Indication: UTERINE LEIOMYOSARCOMA
     Dosage: 1 DF, DAILY
     Route: 048
     Dates: start: 201212, end: 201309
  4. SULFAMETHOXYPYRAZINE/TRIMETHOPRIM [Concomitant]
     Dosage: 1 TABLET BY MOUTH 2 TIMES DAILY
     Route: 048
     Dates: start: 20130823
  5. TRAMADOL [Concomitant]
     Indication: PAIN
     Dosage: 50 MG,(EVERY 6 HOURS AS NEEDED)
     Route: 048
     Dates: start: 20130618
  6. LEUPROLIDE ACETATE [Concomitant]
     Dosage: EVERY 30 DAYS, AS DIRECTED
  7. ZOLEDRONIC ACID [Concomitant]
     Dosage: EVERY 30 DAYS
     Route: 042
  8. DILAUDID [Concomitant]
     Dosage: 2 MG,(1 TABLET BY MOUTH EVERY3 HOURS AS NEEDED)
     Route: 048

REACTIONS (5)
  - Bone lesion [Unknown]
  - Back pain [Unknown]
  - Drug ineffective [Unknown]
  - Uterine cancer [Unknown]
  - Malignant neoplasm progression [Unknown]
